FAERS Safety Report 19800599 (Version 1)
Quarter: 2021Q3

REPORT INFORMATION
  Report Type: Spontaneous
  Country: PT (occurrence: PT)
  Receive Date: 20210908
  Receipt Date: 20210908
  Transmission Date: 20211014
  Serious: Yes (Hospitalization, Other)
  Sender: FDA-Public Use
  Company Number: PT-LUPIN PHARMACEUTICALS INC.-2021-16691

PATIENT
  Age: 53 Year
  Sex: Female

DRUGS (5)
  1. SULFASALAZINE DELAYED?RELEASE [Concomitant]
     Active Substance: SULFASALAZINE
     Indication: SPONDYLITIS
     Dosage: 2 GRAM, QD
     Route: 065
  2. CELECOXIB. [Suspect]
     Active Substance: CELECOXIB
     Indication: SPONDYLITIS
     Dosage: 100 MILLIGRAM, QD
     Route: 065
  3. INFLIXIMAB [Concomitant]
     Active Substance: INFLIXIMAB
     Indication: SPONDYLITIS
     Dosage: UNK
     Route: 065
  4. DEFLAZACORTE [Concomitant]
     Active Substance: DEFLAZACORT
     Indication: SPONDYLITIS
     Dosage: 12 MILLIGRAM, QD
     Route: 065
  5. ADALIMUMAB [Concomitant]
     Active Substance: ADALIMUMAB
     Indication: SPONDYLITIS
     Dosage: UNK
     Route: 065

REACTIONS (2)
  - Tubulointerstitial nephritis [Recovered/Resolved]
  - Glomerulonephritis [Recovered/Resolved]
